FAERS Safety Report 8921408 (Version 2)
Quarter: 2012Q4

REPORT INFORMATION
  Report Type: 
  Country: FR (occurrence: FR)
  Receive Date: 20121122
  Receipt Date: 20121204
  Transmission Date: 20130627
  Serious: Yes (Other)
  Sender: FDA-Public Use
  Company Number: PHHY2012FR105199

PATIENT

DRUGS (5)
  1. ACLASTA [Suspect]
     Indication: OSTEOPOROTIC FRACTURE
     Route: 042
     Dates: start: 20121008
  2. DOLIPRANE [Concomitant]
     Dates: start: 1995
  3. UVEDOSE [Concomitant]
     Dates: start: 1995
  4. AMLOR [Concomitant]
     Dosage: BID
  5. TENORMINE [Concomitant]
     Dosage: QD

REACTIONS (6)
  - Toxic skin eruption [Recovering/Resolving]
  - Rash [Recovered/Resolved]
  - Skin lesion [Unknown]
  - Burns second degree [Unknown]
  - Pyrexia [Recovered/Resolved]
  - Arthralgia [Recovered/Resolved]
